FAERS Safety Report 6852537-3 (Version None)
Quarter: 2010Q3

REPORT INFORMATION
  Report Type: 
  Country: None (occurrence: None)
  Receive Date: 20100717
  Receipt Date: 20071116
  Transmission Date: 20110219
  Serious: No
  Sender: FDA-Public Use
  Company Number: US-PFIZER INC-2007099125

PATIENT
  Sex: Female
  Weight: 70.4 kg

DRUGS (4)
  1. CHANTIX [Suspect]
     Indication: SMOKING CESSATION THERAPY
     Dates: start: 20071102
  2. TOPAMAX [Concomitant]
     Indication: MIGRAINE
  3. CYMBALTA [Concomitant]
     Indication: DEPRESSION
  4. ZYRTEC [Concomitant]
     Indication: URTICARIA

REACTIONS (5)
  - ANOSMIA [None]
  - INSOMNIA [None]
  - NAUSEA [None]
  - NIGHT SWEATS [None]
  - SALIVARY HYPERSECRETION [None]
